FAERS Safety Report 7144865-1 (Version None)
Quarter: 2010Q4

REPORT INFORMATION
  Report Type: 
  Country: None (occurrence: None)
  Receive Date: 20101123
  Receipt Date: 20100729
  Transmission Date: 20110411
  Serious: Yes (Other)
  Sender: FDA-Public Use
  Company Number: TRP_07159_2010

PATIENT
  Sex: Female

DRUGS (2)
  1. INFERGEN [Suspect]
     Indication: PRODUCT USED FOR UNKNOWN INDICATION
     Dosage: (15 UG QD)
     Dates: start: 20100101, end: 20100101
  2. RIBAVIRIN [Suspect]
     Indication: PRODUCT USED FOR UNKNOWN INDICATION
     Dosage: (DF)
     Dates: start: 20100101, end: 20100101

REACTIONS (1)
  - THROMBOCYTOPENIA [None]
